FAERS Safety Report 5026048-4 (Version None)
Quarter: 2006Q2

REPORT INFORMATION
  Report Type: 
  Country: None (occurrence: None)
  Receive Date: 20060614
  Receipt Date: 20060606
  Transmission Date: 20061013
  Serious: Yes (Other)
  Sender: FDA-Public Use
  Company Number: PHBS2006BR08509

PATIENT

DRUGS (1)
  1. FORASEQ [Suspect]

REACTIONS (2)
  - BRONCHOSPASM [None]
  - CONDITION AGGRAVATED [None]
